FAERS Safety Report 14805090 (Version 1)
Quarter: 2018Q2

REPORT INFORMATION
  Report Type: Spontaneous
  Country: US (occurrence: US)
  Receive Date: 20180425
  Receipt Date: 20180425
  Transmission Date: 20180711
  Serious: Yes (Life-Threatening, Hospitalization)
  Sender: FDA-Public Use
  Company Number: US-MYLANLABS-2018M1025243

PATIENT
  Age: 3 Year

DRUGS (2)
  1. CLONAZEPAM. [Suspect]
     Active Substance: CLONAZEPAM
     Indication: PRODUCT USED FOR UNKNOWN INDICATION
     Dosage: 1-6 0.5MG TABLETS
     Route: 048
  2. LAMOTRIGINE. [Suspect]
     Active Substance: LAMOTRIGINE
     Indication: PRODUCT USED FOR UNKNOWN INDICATION
     Dosage: 7-16 25MG ORALLY DISINTEGRATING TABLETS
     Route: 048

REACTIONS (5)
  - Somnolence [Unknown]
  - Generalised tonic-clonic seizure [Recovered/Resolved]
  - Respiratory failure [Unknown]
  - Toxicity to various agents [Unknown]
  - Accidental overdose [Unknown]
